FAERS Safety Report 5241955-5 (Version None)
Quarter: 2007Q1

REPORT INFORMATION
  Report Type: 
  Country: None (occurrence: None)
  Receive Date: 20070220
  Receipt Date: 20070213
  Transmission Date: 20070707
  Serious: Yes (Hospitalization)
  Sender: FDA-Public Use
  Company Number: PL-BOEHRINGER INGELHEIM PHARMACEUTICALS, INC.-2007-DE-00549BY

PATIENT
  Age: 67 Year
  Sex: Male

DRUGS (4)
  1. PRITOR [Suspect]
     Indication: HYPERTENSION
     Route: 048
     Dates: start: 20061218
  2. METOCARD [Concomitant]
     Indication: DRUG USE FOR UNKNOWN INDICATION
     Route: 048
  3. EFFOX [Concomitant]
     Indication: DRUG USE FOR UNKNOWN INDICATION
     Route: 048
  4. ENARENAL [Concomitant]
     Indication: DRUG USE FOR UNKNOWN INDICATION
     Route: 048

REACTIONS (2)
  - ACUTE CORONARY SYNDROME [None]
  - MULTIPLE SCLEROSIS [None]
